FAERS Safety Report 7729242-4 (Version None)
Quarter: 2011Q3

REPORT INFORMATION
  Report Type: 
  Country: None (occurrence: None)
  Receive Date: 20110906
  Receipt Date: 20110829
  Transmission Date: 20111222
  Serious: Yes (Other)
  Sender: FDA-Public Use
  Company Number: US-JNJFOC-20110104138

PATIENT
  Sex: Female
  Weight: 68.04 kg

DRUGS (3)
  1. REMICADE [Suspect]
     Dosage: 5 MG/KG EVERY 6-8 WEEKS; MORE THAN 4 TREATMENTS
     Route: 042
     Dates: start: 20101201
  2. PREDNISONE [Concomitant]
     Dosage: GREATER THAN 6 MONTHS
  3. REMICADE [Suspect]
     Indication: RHEUMATOID ARTHRITIS
     Dosage: 5 MG/KG EVERY 6-8 WEEKS
     Route: 042

REACTIONS (3)
  - CHILLS [None]
  - ARTHRITIS [None]
  - ACTIVITIES OF DAILY LIVING IMPAIRED [None]
